FAERS Safety Report 8586333-6 (Version None)
Quarter: 2012Q3

REPORT INFORMATION
  Report Type: 
  Country: None (occurrence: None)
  Receive Date: 20120810
  Receipt Date: 20120807
  Transmission Date: 20120928
  Serious: Yes (Hospitalization)
  Sender: FDA-Public Use
  Company Number: GB-ROCHE-1099082

PATIENT
  Sex: Female
  Weight: 63 kg

DRUGS (2)
  1. DOCETAXEL [Suspect]
     Indication: BREAST CANCER
     Dosage: CYCLE 1
  2. AVASTIN [Suspect]
     Indication: BREAST CANCER
     Dosage: CYCLE 1

REACTIONS (1)
  - RASH ERYTHEMATOUS [None]
